FAERS Safety Report 5203077-9 (Version None)
Quarter: 2006Q4

REPORT INFORMATION
  Report Type: 
  Country: None (occurrence: None)
  Receive Date: 20061016
  Receipt Date: 20050930
  Transmission Date: 20070319
  Serious: Yes (Other)
  Sender: FDA-Public Use
  Company Number: 2005137072

PATIENT
  Age: 46 Year
  Sex: Female
  Weight: 139.7079 kg

DRUGS (5)
  1. GABAPENTIN [Suspect]
     Indication: CONVULSION
     Dosage: 320  MG (800 MG, 4 IN 1 D)
     Dates: start: 20050101
  2. NEURONTIN [Suspect]
     Indication: CONVULSION
     Dosage: 3200 MG (800 MG 4 IN 1 D)
     Dates: end: 20050101
  3. TEGRETOL [Concomitant]
  4. KEPPRA [Concomitant]
  5. TOPAMAX [Concomitant]

REACTIONS (4)
  - CONVULSION [None]
  - HEADACHE [None]
  - MALAISE [None]
  - PHARMACEUTICAL PRODUCT COMPLAINT [None]
